FAERS Safety Report 7762307-X (Version None)
Quarter: 2011Q3

REPORT INFORMATION
  Report Type: 
  Country: None (occurrence: None)
  Receive Date: 20110920
  Receipt Date: 20110915
  Transmission Date: 20111222
  Serious: Yes (Other)
  Sender: FDA-Public Use
  Company Number: GB-ROCHE-802103

PATIENT
  Age: 29 Year
  Sex: Female

DRUGS (4)
  1. TAMIFLU [Suspect]
     Route: 065
  2. PREDNISOLONE [Concomitant]
  3. HYDROXYCHLOROQUINE SULFATE [Concomitant]
  4. ADCAL D3 [Concomitant]

REACTIONS (1)
  - SWOLLEN TONGUE [None]
